FAERS Safety Report 17566139 (Version 1)
Quarter: 2020Q1

REPORT INFORMATION
  Report Type: Spontaneous
  Country: US (occurrence: US)
  Receive Date: 20200320
  Receipt Date: 20200320
  Transmission Date: 20200409
  Serious: No
  Sender: FDA-Public Use
  Company Number: None

PATIENT
  Age: 80 Year
  Sex: Female
  Weight: 56.93 kg

DRUGS (16)
  1. ATENOLOL 100 MG DAILY [Concomitant]
  2. COLACE [Concomitant]
     Active Substance: DOCUSATE SODIUM
  3. LISINOPRIL 10 MG DAILY [Concomitant]
  4. CALCIUM CARBONATE 1250/ 5 ML SOLUTION [Concomitant]
  5. VITAMIN D 25 MCG [Concomitant]
  6. IBRANCE [Concomitant]
     Active Substance: PALBOCICLIB
     Dates: start: 20190102, end: 20191010
  7. LAMOTRIGINE 200 MG DAILY [Concomitant]
  8. REFRESH LIQUID 1% DAILY [Concomitant]
  9. DIGOXIN 125 MCG DAILY [Concomitant]
  10. RESTASIS MULTI DOSE 0.05 % DAILY [Concomitant]
  11. AFFINITOR 7.5 MG [Concomitant]
  12. LASIX [Concomitant]
     Active Substance: FUROSEMIDE
  13. EVEROLIMUS. [Suspect]
     Active Substance: EVEROLIMUS
     Indication: BREAST CANCER
     Route: 048
     Dates: start: 20191220, end: 20200320
  14. IBRANCE 100 MG CAPSULE DAILY [Concomitant]
     Dates: start: 20171030, end: 20180403
  15. GABAPENTIN 200MG DAILY [Concomitant]
  16. ELIQUIS [Concomitant]
     Active Substance: APIXABAN

REACTIONS (1)
  - Disease progression [None]

NARRATIVE: CASE EVENT DATE: 20200319
